FAERS Safety Report 11552447 (Version 2)
Quarter: 2015Q4

REPORT INFORMATION
  Report Type: Spontaneous
  Country: IL (occurrence: IL)
  Receive Date: 20150925
  Receipt Date: 20151008
  Transmission Date: 20160304
  Serious: Yes (Hospitalization, Other)
  Sender: FDA-Public Use
  Company Number: IL-JNJFOC-20150917531

PATIENT
  Age: 66 Year
  Sex: Male

DRUGS (12)
  1. NOVONORM [Concomitant]
     Active Substance: REPAGLINIDE
  2. LIPITOR [Concomitant]
     Active Substance: ATORVASTATIN CALCIUM
  3. VITAMIN D [Concomitant]
     Active Substance: CHOLECALCIFEROL
  4. ZOVIRAX [Concomitant]
     Active Substance: ACYCLOVIR
  5. ASPIRIN. [Concomitant]
     Active Substance: ASPIRIN
  6. LANTON [Concomitant]
  7. INSULIN [Concomitant]
     Active Substance: INSULIN NOS
  8. IBRUTINIB [Suspect]
     Active Substance: IBRUTINIB
     Indication: CHRONIC LYMPHOCYTIC LEUKAEMIA
     Route: 048
     Dates: start: 201505
  9. JANUVIA [Concomitant]
     Active Substance: SITAGLIPTIN PHOSPHATE
  10. IBRUTINIB [Suspect]
     Active Substance: IBRUTINIB
     Indication: CHRONIC LYMPHOCYTIC LEUKAEMIA
     Route: 048
  11. ELTROXIN [Concomitant]
     Active Substance: LEVOTHYROXINE
  12. GLUCOMIN [Concomitant]
     Active Substance: METFORMIN HYDROCHLORIDE

REACTIONS (2)
  - Groin abscess [Unknown]
  - Skin lesion [Unknown]
